FAERS Safety Report 24685333 (Version 1)
Quarter: 2024Q4

REPORT INFORMATION
  Report Type: Spontaneous
  Country: US (occurrence: None)
  Receive Date: 20241127
  Receipt Date: 20241127
  Transmission Date: 20250115
  Serious: Yes (Hospitalization)
  Sender: Public
  Company Number: None

PATIENT
  Age: 76 Year
  Sex: Male

DRUGS (1)
  1. ROPINIROLE HYDROCHLORIDE [Suspect]
     Active Substance: ROPINIROLE HYDROCHLORIDE
     Indication: Parkinson^s disease
     Dosage: FREQUENCY : 3 TIMES A DAY;?
     Route: 048
     Dates: start: 20230719

REACTIONS (3)
  - Confusional state [None]
  - Hallucination [None]
  - Prostatitis [None]

NARRATIVE: CASE EVENT DATE: 20240610
